FAERS Safety Report 11758145 (Version 1)
Quarter: 2015Q4

REPORT INFORMATION
  Report Type: Spontaneous
  Country: US (occurrence: US)
  Receive Date: 20151120
  Receipt Date: 20151120
  Transmission Date: 20160304
  Serious: No
  Sender: FDA-Public Use
  Company Number: US-PERRIGO-15US002121

PATIENT
  Age: 2 Year
  Sex: Female
  Weight: 11.34 kg

DRUGS (1)
  1. FAMOTIDINE. [Suspect]
     Active Substance: FAMOTIDINE
     Indication: ACCIDENTAL EXPOSURE TO PRODUCT BY CHILD
     Dosage: APPROXIMATELY 1.5 TABLETS, SINGLE
     Route: 048
     Dates: start: 20150218, end: 20150218

REACTIONS (4)
  - Nasal oedema [Recovered/Resolved]
  - Diarrhoea [Recovered/Resolved]
  - Accidental exposure to product by child [Recovered/Resolved]
  - Erythema [Recovered/Resolved]

NARRATIVE: CASE EVENT DATE: 20150218
